FAERS Safety Report 17608225 (Version 1)
Quarter: 2020Q1

REPORT INFORMATION
  Report Type: Spontaneous
  Country: NL (occurrence: NO)
  Receive Date: 20200331
  Receipt Date: 20200331
  Transmission Date: 20200409
  Serious: Yes (Hospitalization)
  Sender: FDA-Public Use
  Company Number: NO-FRESENIUS KABI-FK202003251

PATIENT
  Age: 25 Year
  Sex: Female

DRUGS (3)
  1. MANNITOL (MANUFACTURER UNKNOWN) [Suspect]
     Active Substance: MANNITOL
     Indication: MAGNETIC RESONANCE IMAGING
     Dosage: STRENGTH OF SOLUTION NOT GIVEN IN REPORT
     Route: 042
     Dates: start: 20200206, end: 20200206
  2. MEGLUMINE GADOTERATE [Suspect]
     Active Substance: GADOTERATE MEGLUMINE
     Indication: MAGNETIC RESONANCE IMAGING
     Route: 042
     Dates: start: 20200206, end: 20200206
  3. HYOSCINE BUTYLBROMIDE [Suspect]
     Active Substance: BUTYLSCOPOLAMINE BROMIDE
     Indication: MAGNETIC RESONANCE IMAGING
     Route: 040
     Dates: start: 20200206, end: 20200206

REACTIONS (1)
  - Hepatitis acute [Recovered/Resolved]

NARRATIVE: CASE EVENT DATE: 20200206
